FAERS Safety Report 12614611 (Version 1)
Quarter: 2016Q3

REPORT INFORMATION
  Report Type: Spontaneous
  Country: FR (occurrence: FR)
  Receive Date: 20160802
  Receipt Date: 20160802
  Transmission Date: 20161109
  Serious: Yes (Hospitalization)
  Sender: FDA-Public Use
  Company Number: FR-ABBVIE-16P-056-1690748-00

PATIENT
  Age: 65 Year
  Sex: Male

DRUGS (6)
  1. DEPAKINE CHRONO [Suspect]
     Active Substance: VALPROATE SODIUM
     Indication: SUICIDE ATTEMPT
     Dosage: EXTENDED RELEASE
     Route: 048
     Dates: start: 20160128, end: 20160128
  2. KARDEGIC [Suspect]
     Active Substance: ASPIRIN LYSINE
     Indication: SUICIDE ATTEMPT
     Route: 048
     Dates: start: 20160128, end: 20160128
  3. PAROXETINE HYDROCHLORIDE. [Suspect]
     Active Substance: PAROXETINE HYDROCHLORIDE
     Indication: SUICIDE ATTEMPT
     Route: 048
     Dates: start: 20160128, end: 20160128
  4. AMLOR [Suspect]
     Active Substance: AMLODIPINE BESYLATE
     Indication: SUICIDE ATTEMPT
     Route: 048
     Dates: start: 20160128, end: 20160128
  5. ZOPICLONE [Suspect]
     Active Substance: ZOPICLONE
     Indication: SUICIDE ATTEMPT
     Route: 048
     Dates: start: 20160128, end: 20160128
  6. DIAZEPAM. [Suspect]
     Active Substance: DIAZEPAM
     Indication: SUICIDE ATTEMPT
     Route: 048
     Dates: start: 20160128, end: 20160128

REACTIONS (4)
  - Sedation [Recovered/Resolved]
  - Dyspnoea [Recovered/Resolved]
  - Cough [Recovered/Resolved]
  - Drug level increased [Recovered/Resolved]

NARRATIVE: CASE EVENT DATE: 20160129
